FAERS Safety Report 6438427-9 (Version None)
Quarter: 2009Q4

REPORT INFORMATION
  Report Type: 
  Country: None (occurrence: None)
  Receive Date: 20091109
  Receipt Date: 20091023
  Transmission Date: 20100525
  Serious: Yes (Death, Hospitalization)
  Sender: FDA-Public Use
  Company Number: 2009003255

PATIENT
  Age: 55 Year
  Sex: Male

DRUGS (2)
  1. ERLOTINIB HYDROCHLORIDE [Suspect]
     Indication: PANCREATIC CARCINOMA NON-RESECTABLE
     Dosage: (100 MG, QD), ORAL
     Route: 048
     Dates: start: 20081218
  2. GEMCITABINE [Suspect]
     Indication: PANCREATIC CARCINOMA RESECTABLE
     Dosage: (1900 MG, 1 IN 8 D), INTRAVENOUS
     Route: 042
     Dates: start: 20081218

REACTIONS (1)
  - ABDOMINAL PAIN [None]
